FAERS Safety Report 6950882-4 (Version None)
Quarter: 2010Q3

REPORT INFORMATION
  Report Type: 
  Country: None (occurrence: None)
  Receive Date: 20100828
  Receipt Date: 20100226
  Transmission Date: 20110219
  Serious: No
  Sender: FDA-Public Use
  Company Number: US-ABBOTT-10P-163-0629801-00

PATIENT
  Sex: Male
  Weight: 61.744 kg

DRUGS (5)
  1. NIASPAN [Suspect]
     Indication: HIGH DENSITY LIPOPROTEIN DECREASED
     Dosage: UNCOATED FORMULATION
     Route: 048
     Dates: start: 20000101, end: 20100211
  2. NIASPAN [Suspect]
     Dosage: COATED FORMULATION
     Route: 048
     Dates: start: 20100212
  3. ASPIRIN [Concomitant]
     Indication: PRODUCT USED FOR UNKNOWN INDICATION
     Route: 048
  4. LISINOPRIL [Concomitant]
     Indication: HYPERTENSION
     Route: 048
  5. AMLODIPINE [Concomitant]
     Indication: HYPERTENSION
     Route: 048

REACTIONS (9)
  - ABDOMINAL PAIN UPPER [None]
  - CHEST DISCOMFORT [None]
  - DECREASED APPETITE [None]
  - DYSPEPSIA [None]
  - ERYTHEMA [None]
  - HEART RATE INCREASED [None]
  - HYPERHIDROSIS [None]
  - PARAESTHESIA [None]
  - VISION BLURRED [None]
